FAERS Safety Report 9195061 (Version 1)
Quarter: 2013Q1

REPORT INFORMATION
  Report Type: Spontaneous
  Country: US (occurrence: US)
  Receive Date: 20130328
  Receipt Date: 20130328
  Transmission Date: 20140127
  Serious: No
  Sender: FDA-Public Use
  Company Number: US-ALLERGAN-1215715US

PATIENT
  Age: 58 Year
  Sex: Female

DRUGS (3)
  1. LATISSE 0.03% [Suspect]
     Indication: GROWTH OF EYELASHES
     Dosage: 2 GTT, QHS
     Route: 061
  2. LATISSE 0.03% [Suspect]
  3. UNSPECIFIED HRT MEDICINE [Concomitant]
     Indication: HORMONE REPLACEMENT THERAPY

REACTIONS (5)
  - Drug administered at inappropriate site [Unknown]
  - Skin irritation [Unknown]
  - Erythema [Unknown]
  - Erythema of eyelid [Unknown]
  - Eyelid irritation [Unknown]
